FAERS Safety Report 7712342-2 (Version None)
Quarter: 2011Q3

REPORT INFORMATION
  Report Type: 
  Country: None (occurrence: None)
  Receive Date: 20110826
  Receipt Date: 20110818
  Transmission Date: 20111222
  Serious: Yes (Other)
  Sender: FDA-Public Use
  Company Number: IE-ROCHE-780465

PATIENT
  Sex: Female

DRUGS (2)
  1. METHOXY POLYETHYLENE GLYCOL-EPOETIN BETA [Suspect]
     Dosage: FREQUENCY: FORTNIGHTLY
     Route: 058
     Dates: start: 20110518, end: 20110629
  2. METHOXY POLYETHYLENE GLYCOL-EPOETIN BETA [Suspect]
     Dosage: FREQUENCY: FORTNIGHTLY
     Route: 058
     Dates: end: 20110518

REACTIONS (2)
  - DRUG INEFFECTIVE [None]
  - NO ADVERSE EVENT [None]
